FAERS Safety Report 9822450 (Version 1)
Quarter: 2014Q1

REPORT INFORMATION
  Report Type: Spontaneous
  Country: US (occurrence: US)
  Receive Date: 20140116
  Receipt Date: 20140116
  Transmission Date: 20141002
  Serious: No
  Sender: FDA-Public Use
  Company Number: US-ORAPHARMA-20110512599

PATIENT
  Sex: 0

DRUGS (3)
  1. ARESTIN [Suspect]
     Indication: GINGIVITIS
     Route: 048
     Dates: start: 20110518, end: 20110518
  2. LIPITOR [Concomitant]
     Route: 065
  3. BENICAR [Concomitant]
     Route: 065

REACTIONS (5)
  - Headache [Not Recovered/Not Resolved]
  - Nausea [Not Recovered/Not Resolved]
  - Cold sweat [Not Recovered/Not Resolved]
  - Body temperature fluctuation [Not Recovered/Not Resolved]
  - Influenza [Not Recovered/Not Resolved]
